FAERS Safety Report 10266885 (Version 2)
Quarter: 2014Q3

REPORT INFORMATION
  Report Type: Spontaneous
  Country: US (occurrence: US)
  Receive Date: 20140630
  Receipt Date: 20140819
  Transmission Date: 20150326
  Serious: Yes (Other)
  Sender: FDA-Public Use
  Company Number: US-BIOGENIDEC-2014BI062413

PATIENT
  Sex: Female

DRUGS (2)
  1. AVONEX [Suspect]
     Active Substance: INTERFERON BETA-1A
     Indication: PRODUCT USED FOR UNKNOWN INDICATION
     Route: 030
     Dates: start: 20120701, end: 20130111
  2. AVONEX [Suspect]
     Active Substance: INTERFERON BETA-1A
     Indication: PRODUCT USED FOR UNKNOWN INDICATION
     Route: 030
     Dates: start: 201310, end: 201401

REACTIONS (8)
  - Appendicitis [Unknown]
  - Crying [Not Recovered/Not Resolved]
  - Ovarian cyst ruptured [Unknown]
  - Dermatitis contact [Unknown]
  - Conjunctivitis [Unknown]
  - Tooth abscess [Unknown]
  - Drug hypersensitivity [Unknown]
  - Flank pain [Unknown]

NARRATIVE: CASE EVENT DATE: 201301
